FAERS Safety Report 9904458 (Version 1)
Quarter: 2014Q1

REPORT INFORMATION
  Report Type: Spontaneous
  Country: US (occurrence: US)
  Receive Date: 20140218
  Receipt Date: 20140218
  Transmission Date: 20141002
  Serious: No
  Sender: FDA-Public Use
  Company Number: US-HORIZON-DUE-0059-2013

PATIENT
  Age: 66 Year
  Sex: Female

DRUGS (1)
  1. DUEXIS [Suspect]
     Indication: PAIN
     Dosage: DOSAGEFORM, ONCE DAILY
     Dates: start: 20131115, end: 20131117

REACTIONS (2)
  - Headache [Recovered/Resolved]
  - Somnolence [Recovered/Resolved]
